FAERS Safety Report 6121151-X (Version None)
Quarter: 2009Q1

REPORT INFORMATION
  Report Type: 
  Country: None (occurrence: None)
  Receive Date: 20090317
  Receipt Date: 20090309
  Transmission Date: 20090719
  Serious: Yes (Other)
  Sender: FDA-Public Use
  Company Number: B0538159A

PATIENT
  Age: 67 Year
  Sex: Male

DRUGS (10)
  1. WELLBUTRIN XR [Suspect]
     Indication: DEPRESSION
     Dosage: 300MG PER DAY
     Route: 048
     Dates: start: 20080625, end: 20080709
  2. BECOZYM FORTE [Concomitant]
     Route: 048
  3. BENERVA [Concomitant]
     Dosage: 300MG PER DAY
     Route: 048
  4. FOLIC ACID [Concomitant]
     Dosage: 5MG PER DAY
     Route: 048
  5. ASPIRIN [Concomitant]
     Dosage: 300MG PER DAY
     Route: 048
     Dates: end: 20080619
  6. PLAVIX [Concomitant]
     Dosage: 75MG PER DAY
     Route: 048
     Dates: start: 20080620
  7. TRITTICO [Concomitant]
     Indication: DEPRESSION
     Dosage: 100MG PER DAY
     Route: 048
     Dates: start: 20080610, end: 20080716
  8. TRITTICO [Concomitant]
     Dosage: 200MG PER DAY
     Route: 048
     Dates: start: 20080717
  9. OXAZEPAM [Concomitant]
     Dosage: 45MG PER DAY
     Route: 048
     Dates: end: 20080618
  10. OXAZEPAM [Concomitant]
     Dosage: 30MG PER DAY
     Route: 048
     Dates: start: 20080619

REACTIONS (2)
  - LIBIDO INCREASED [None]
  - SEXUAL ABUSE [None]
